FAERS Safety Report 14119939 (Version 1)
Quarter: 2017Q4

REPORT INFORMATION
  Report Type: Spontaneous
  Country: US (occurrence: US)
  Receive Date: 20171024
  Receipt Date: 20171024
  Transmission Date: 20180321
  Serious: Yes (Other)
  Sender: FDA-Public Use
  Company Number: US-GLAXOSMITHKLINE-US2017GSK161698

PATIENT
  Age: 81 Year
  Sex: Male

DRUGS (7)
  1. BUPROPION. [Suspect]
     Active Substance: BUPROPION
  2. ELIQUIS [Suspect]
     Active Substance: APIXABAN
     Indication: ATRIAL FIBRILLATION
     Dosage: 2.5 MG, BID
  3. SIMVASTATIN. [Suspect]
     Active Substance: SIMVASTATIN
  4. DOXAZOSIN [Suspect]
     Active Substance: DOXAZOSIN\DOXAZOSIN MESYLATE
  5. ASPIRIN. [Suspect]
     Active Substance: ASPIRIN
  6. FINASTERIDE. [Suspect]
     Active Substance: FINASTERIDE
  7. METOPROLOL. [Suspect]
     Active Substance: METOPROLOL

REACTIONS (9)
  - Subarachnoid haemorrhage [Unknown]
  - Syncope [Unknown]
  - Haemorrhage intracranial [Unknown]
  - Craniotomy [Unknown]
  - Anxiety [Unknown]
  - Benign prostatic hyperplasia [Unknown]
  - Atrial fibrillation [Unknown]
  - Percutaneous coronary intervention [Unknown]
  - Stent placement [Unknown]
